FAERS Safety Report 14289763 (Version 1)
Quarter: 2017Q4

REPORT INFORMATION
  Report Type: Spontaneous
  Country: US (occurrence: None)
  Receive Date: 20171214
  Receipt Date: 20171214
  Transmission Date: 20180321
  Serious: Yes (Other)
  Sender: FDA-Public Use
  Company Number: None

PATIENT
  Age: 39 Year
  Sex: Female
  Weight: 136.08 kg

DRUGS (1)
  1. IUD NOS [Suspect]
     Active Substance: COPPER OR LEVONORGESTREL

REACTIONS (8)
  - Suicidal ideation [None]
  - Fatigue [None]
  - Dizziness [None]
  - Infection [None]
  - Weight increased [None]
  - Seizure [None]
  - Alopecia [None]
  - Mood swings [None]
